FAERS Safety Report 23816000 (Version 3)
Quarter: 2025Q4

REPORT INFORMATION
  Report Type: Report from Study
  Country: US (occurrence: US)
  Receive Date: 20240503
  Receipt Date: 20251117
  Transmission Date: 20260118
  Serious: No
  Sender: SANDOZ
  Company Number: US-SANDOZ-SDZ2024US044849

PATIENT
  Sex: Male

DRUGS (6)
  1. OMNITROPE [Suspect]
     Active Substance: SOMATROPIN
     Dosage: 1.8 MG/KG(MILIGRAM/KILOGRAM), QD
     Route: 058
  2. OMNITROPE [Suspect]
     Active Substance: SOMATROPIN
     Dosage: 1.8 MG/KG(MILIGRAM/KILOGRAM), QD
     Route: 058
  3. OMNITROPE [Suspect]
     Active Substance: SOMATROPIN
     Dosage: 1.8 MG, QD
     Route: 058
  4. OMNITROPE [Suspect]
     Active Substance: SOMATROPIN
     Dosage: 1.8 MG, QD
     Route: 058
  5. OMNITROPE [Suspect]
     Active Substance: SOMATROPIN
     Indication: Short stature
     Dosage: 0.9 MG, QD (10 MG / 1.5 ML SOLUTION FOR INJECTION)
     Route: 058
  6. OMNITROPE [Suspect]
     Active Substance: SOMATROPIN
     Indication: Short stature
     Dosage: 0.9 MG, QD (10 MG / 1.5 ML SOLUTION FOR INJECTION)
     Route: 058

REACTIONS (6)
  - Incorrect dose administered [Unknown]
  - Device difficult to use [Unknown]
  - Device breakage [Unknown]
  - Device delivery system issue [Unknown]
  - Liquid product physical issue [Unknown]
  - Device leakage [Unknown]
